APPROVED DRUG PRODUCT: ACUVAIL
Active Ingredient: KETOROLAC TROMETHAMINE
Strength: 0.45%
Dosage Form/Route: SOLUTION/DROPS;OPHTHALMIC
Application: N022427 | Product #001
Applicant: ABBVIE INC
Approved: Jul 22, 2009 | RLD: Yes | RS: Yes | Type: RX

PATENTS:
Patent 8512717 | Expires: Mar 7, 2028
Patent 7842714 | Expires: Aug 15, 2029
Patent 9192571 | Expires: Mar 7, 2028